FAERS Safety Report 23335562 (Version 1)
Quarter: 2023Q4

REPORT INFORMATION
  Report Type: Spontaneous
  Country: CH (occurrence: CH)
  Receive Date: 20231225
  Receipt Date: 20231225
  Transmission Date: 20240110
  Serious: Yes (Other)
  Sender: FDA-Public Use
  Company Number: CH-SA-SAC20231216000070

PATIENT
  Age: 62 Year
  Sex: Male
  Weight: 62.2 kg

DRUGS (15)
  1. ALGLUCOSIDASE ALFA [Suspect]
     Active Substance: ALGLUCOSIDASE ALFA
     Indication: Glycogen storage disease type II
     Dosage: 20 MG/KG, QOW (DURATION: 3 HOURS 30 MINUTES)
     Route: 065
     Dates: start: 20160923
  2. ALGLUCOSIDASE ALFA [Suspect]
     Active Substance: ALGLUCOSIDASE ALFA
     Dosage: 20 MG/KG, QOW (DURATION: 2 HOURS 30 MINUTES)
     Route: 065
     Dates: start: 20170210
  3. ALGLUCOSIDASE ALFA [Suspect]
     Active Substance: ALGLUCOSIDASE ALFA
     Dosage: 20 MG/KG, QOW (DURATION: 2 HOURS 30 MINUTES)
     Route: 065
     Dates: start: 20171030
  4. ALGLUCOSIDASE ALFA [Suspect]
     Active Substance: ALGLUCOSIDASE ALFA
     Dosage: 20 MG/KG, QOW (DURATION: 2 HOURS 30 MINUTES)
     Route: 065
     Dates: start: 20180418
  5. ALGLUCOSIDASE ALFA [Suspect]
     Active Substance: ALGLUCOSIDASE ALFA
     Dosage: 20 MG/KG, QOW (DURATION: 2 HOURS 30 MINUTES)
     Route: 065
     Dates: start: 20181022
  6. ALGLUCOSIDASE ALFA [Suspect]
     Active Substance: ALGLUCOSIDASE ALFA
     Dosage: 20 MG/KG, QOW (DURATION: 2 HOURS 30 MINUTES)
     Route: 065
     Dates: start: 20190405
  7. ALGLUCOSIDASE ALFA [Suspect]
     Active Substance: ALGLUCOSIDASE ALFA
     Dosage: 20 MG/KG, QOW (DURATION: 2 HOURS 30 MINUTES)
     Route: 065
     Dates: start: 20191009
  8. ALGLUCOSIDASE ALFA [Suspect]
     Active Substance: ALGLUCOSIDASE ALFA
     Dosage: 20 MG/KG, QOW (DURATION: 2 HOURS 30 MINUTES)
     Route: 065
     Dates: start: 20200805
  9. ALGLUCOSIDASE ALFA [Suspect]
     Active Substance: ALGLUCOSIDASE ALFA
     Dosage: 20 MG/KG, QOW
     Route: 065
     Dates: start: 20210807
  10. ALGLUCOSIDASE ALFA [Suspect]
     Active Substance: ALGLUCOSIDASE ALFA
     Dosage: 20 MG/KG, QOW
     Route: 065
     Dates: start: 20220322
  11. ALGLUCOSIDASE ALFA [Suspect]
     Active Substance: ALGLUCOSIDASE ALFA
     Dosage: 20 MG/KG, QOW
     Route: 065
     Dates: start: 20230329
  12. CREATINE MONOHYDRATE [Concomitant]
     Active Substance: CREATINE MONOHYDRATE
     Dosage: UNK
     Dates: start: 20170410
  13. FINASTERIDE [Concomitant]
     Active Substance: FINASTERIDE
     Dosage: UNK
     Dates: start: 20170922, end: 20181022
  14. VITAMIN D3 [Concomitant]
     Active Substance: CHOLECALCIFEROL
     Dosage: UNK
     Dates: start: 20181022
  15. DAFALGAN [Concomitant]
     Active Substance: ACETAMINOPHEN
     Dosage: UNK
     Dates: start: 20220322

REACTIONS (10)
  - Anterograde amnesia [Unknown]
  - Transient global amnesia [Unknown]
  - General physical health deterioration [Unknown]
  - Myopathy [Unknown]
  - Paresis [Unknown]
  - Winged scapula [Unknown]
  - Confusional state [Unknown]
  - Retrograde amnesia [Unknown]
  - Muscular weakness [Unknown]
  - Gait disturbance [Unknown]

NARRATIVE: CASE EVENT DATE: 20230801
